FAERS Safety Report 8763035 (Version 2)
Quarter: 2012Q4

REPORT INFORMATION
  Report Type: Spontaneous
  Country: US (occurrence: None)
  Receive Date: 20120823
  Receipt Date: 20120907
  Transmission Date: 20130627
  Serious: Yes (Hospitalization)
  Sender: FDA-Public Use
  Company Number: 20120511

PATIENT
  Age: 70 Year
  Sex: Female

DRUGS (8)
  1. SPRIX [Suspect]
     Indication: BACK PAIN
     Dosage: 1 spray each nostril
     Route: 045
     Dates: start: 20120713, end: 201207
  2. SPRIX [Suspect]
     Indication: BACK PAIN
     Dosage: 1 spray each nostril
     Route: 045
     Dates: start: 20120713, end: 201207
  3. WARFARIN SODIUM [Concomitant]
  4. ATENOLOL [Concomitant]
  5. SENNA [Concomitant]
  6. LEVOTHYROXINE [Concomitant]
  7. OXYCODONE [Concomitant]
  8. DISOPYRAMIDE [Concomitant]

REACTIONS (6)
  - Abdominal pain [None]
  - Intestinal obstruction [None]
  - Large intestinal ulcer [None]
  - Intestinal obstruction [None]
  - Atrial fibrillation [None]
  - Cystitis [None]
